FAERS Safety Report 8174046-4 (Version None)
Quarter: 2012Q1

REPORT INFORMATION
  Report Type: 
  Country: None (occurrence: None)
  Receive Date: 20120229
  Receipt Date: 20120214
  Transmission Date: 20120608
  Serious: Yes (Hospitalization)
  Sender: FDA-Public Use
  Company Number: US-WATSON-2012-02656

PATIENT
  Age: 30 Year
  Sex: Female

DRUGS (1)
  1. BACLOFEN [Suspect]
     Indication: MUSCLE SPASMS
     Dosage: 300 MG, SINGLE
     Route: 048

REACTIONS (3)
  - FAECAL INCONTINENCE [None]
  - INTENTIONAL OVERDOSE [None]
  - COMA [None]
